FAERS Safety Report 9636172 (Version 1)
Quarter: 2013Q4

REPORT INFORMATION
  Report Type: Report from Study
  Country: MX (occurrence: MX)
  Receive Date: 20131021
  Receipt Date: 20131021
  Transmission Date: 20140711
  Serious: Yes (Death)
  Sender: FDA-Public Use
  Company Number: MX-TAKEDA-2013TJP001916

PATIENT
  Sex: 0

DRUGS (2)
  1. PIOGLITAZONE, METFORMIN [Suspect]
     Indication: PRODUCT USED FOR UNKNOWN INDICATION
  2. LINAGLIPTIN [Concomitant]

REACTIONS (1)
  - Death [Fatal]
